FAERS Safety Report 4729621-3 (Version None)
Quarter: 2005Q3

REPORT INFORMATION
  Report Type: 
  Country: None (occurrence: None)
  Receive Date: 20050801
  Receipt Date: 20030130
  Transmission Date: 20060218
  Serious: Yes (Hospitalization)
  Sender: FDA-Public Use
  Company Number: US-MERCK-0302USA00099

PATIENT
  Age: 65 Year
  Sex: Female
  Weight: 79 kg

DRUGS (20)
  1. VIOXX [Suspect]
     Indication: OSTEOARTHRITIS
     Route: 048
     Dates: start: 19991019, end: 20020101
  2. VIOXX [Suspect]
     Route: 048
     Dates: end: 20020101
  3. VIOXX [Suspect]
     Indication: RHEUMATOID ARTHRITIS
     Route: 048
     Dates: start: 19991019, end: 20020101
  4. VIOXX [Suspect]
     Route: 048
     Dates: end: 20020101
  5. ZOCOR [Concomitant]
     Indication: BLOOD CHOLESTEROL INCREASED
     Route: 048
  6. PROCARDIA [Concomitant]
     Indication: BLOOD PRESSURE
     Route: 065
     Dates: start: 19920101, end: 20010101
  7. NORVASC [Concomitant]
     Indication: BLOOD PRESSURE
     Route: 065
     Dates: start: 20010101, end: 20010101
  8. LOTENSIN [Concomitant]
     Route: 065
     Dates: start: 20010101
  9. ATENOLOL [Concomitant]
     Route: 065
  10. BUMETANIDE [Concomitant]
     Indication: OEDEMA
     Route: 065
     Dates: start: 19960101
  11. K-TAB [Concomitant]
     Route: 065
     Dates: start: 19990101
  12. PREMPRO [Concomitant]
     Indication: HORMONE REPLACEMENT THERAPY
     Route: 065
     Dates: start: 19810101, end: 20010101
  13. CELEBREX [Concomitant]
     Route: 065
     Dates: end: 19980101
  14. COUMADIN [Concomitant]
     Indication: HOSPITALISATION
     Route: 065
     Dates: start: 19980101
  15. COUMADIN [Concomitant]
     Route: 065
     Dates: start: 20010101
  16. COUMADIN [Concomitant]
     Indication: PULMONARY EMBOLISM
     Route: 065
     Dates: start: 19980101
  17. COUMADIN [Concomitant]
     Route: 065
     Dates: start: 20010101
  18. ASPIRIN [Concomitant]
     Indication: PROPHYLAXIS
     Route: 065
     Dates: start: 19930101
  19. TYLENOL (CAPLET) [Concomitant]
     Route: 065
  20. HYDRALAZINE [Concomitant]
     Route: 065

REACTIONS (21)
  - ABDOMINAL HERNIA [None]
  - CHEST DISCOMFORT [None]
  - CORONARY ARTERY DISEASE [None]
  - DRUG TOLERANCE DECREASED [None]
  - DYSLIPIDAEMIA [None]
  - FATIGUE [None]
  - GASTRIC ULCER [None]
  - HAEMORRHOIDS [None]
  - HYPOKALAEMIA [None]
  - INJURY [None]
  - JOINT INJURY [None]
  - LABILE HYPERTENSION [None]
  - MASS [None]
  - MITRAL VALVE INCOMPETENCE [None]
  - OEDEMA [None]
  - PALPITATIONS [None]
  - PHLEBITIS [None]
  - THROMBOSIS [None]
  - TRICUSPID VALVE INCOMPETENCE [None]
  - UMBILICAL HERNIA [None]
  - WEIGHT INCREASED [None]
